FAERS Safety Report 17361757 (Version 1)
Quarter: 2020Q1

REPORT INFORMATION
  Report Type: Spontaneous
  Country: US (occurrence: US)
  Receive Date: 20200117
  Receipt Date: 20200117
  Transmission Date: 20200409
  Serious: No
  Sender: FDA-Public Use
  Company Number: None

PATIENT
  Age: 50 Year
  Sex: Male
  Weight: 85.73 kg

DRUGS (1)
  1. OTREXUP [Suspect]
     Active Substance: METHOTREXATE
     Indication: RHEUMATOID ARTHRITIS
     Dosage: 1MG (0.4ML) ONCE WEEKLY THE SAME DAY EACH WEEK AS DIRECTED.
     Route: 058
     Dates: start: 201912

REACTIONS (3)
  - Cardiac disorder [None]
  - Hospitalisation [None]
  - Therapy cessation [None]
